FAERS Safety Report 5912241-2 (Version None)
Quarter: 2008Q4

REPORT INFORMATION
  Report Type: 
  Country: None (occurrence: None)
  Receive Date: 20081008
  Receipt Date: 20081002
  Transmission Date: 20090506
  Serious: Yes (Other)
  Sender: FDA-Public Use
  Company Number: A0750294A

PATIENT
  Sex: Female

DRUGS (3)
  1. LAMICTAL [Suspect]
     Indication: BIPOLAR DISORDER
     Dosage: 100MG PER DAY
     Route: 048
     Dates: start: 20080101, end: 20080901
  2. GEODON [Suspect]
     Indication: BIPOLAR DISORDER
     Route: 048
     Dates: end: 20080901
  3. NEURONTIN [Suspect]
     Indication: BIPOLAR DISORDER
     Dosage: 900MG UNKNOWN
     Route: 048
     Dates: end: 20080901

REACTIONS (2)
  - HEART RATE DECREASED [None]
  - SYNCOPE [None]
